FAERS Safety Report 10058173 (Version 2)
Quarter: 2014Q2

REPORT INFORMATION
  Report Type: Spontaneous
  Country: US (occurrence: US)
  Receive Date: 20140404
  Receipt Date: 20140522
  Transmission Date: 20141212
  Serious: No
  Sender: FDA-Public Use
  Company Number: US-PFIZER INC-2014094977

PATIENT
  Age: 59 Year
  Sex: Female
  Weight: 106.12 kg

DRUGS (2)
  1. LYRICA [Suspect]
     Indication: NEUROPATHY PERIPHERAL
     Dosage: 200 MG, 2X/DAY
     Route: 048
  2. LYRICA [Suspect]
     Dosage: 200 MG, 2X/DAY
     Route: 048

REACTIONS (5)
  - Pain [Unknown]
  - Gait disturbance [Unknown]
  - Peripheral swelling [Unknown]
  - Burning sensation [Unknown]
  - Pain in extremity [Unknown]
